FAERS Safety Report 8912786 (Version 1)
Quarter: 2012Q4

REPORT INFORMATION
  Report Type: 
  Country: DE (occurrence: DE)
  Receive Date: 20121116
  Receipt Date: 20121116
  Transmission Date: 20130627
  Serious: Yes (Death, Hospitalization)
  Sender: FDA-Public Use
  Company Number: DE-ROXANE LABORATORIES, INC.-2012-RO-02359RO

PATIENT
  Age: 50 Day

DRUGS (1)
  1. METHADONE [Suspect]
     Indication: MATERNAL EXPOSURE DURING PREGNANCY
     Route: 064

REACTIONS (3)
  - Sudden infant death syndrome [Fatal]
  - Drug withdrawal syndrome neonatal [Unknown]
  - Agitation neonatal [Unknown]
